FAERS Safety Report 24839240 (Version 2)
Quarter: 2025Q3

REPORT INFORMATION
  Report Type: Spontaneous
  Country: AU (occurrence: AU)
  Receive Date: 20250114
  Receipt Date: 20250809
  Transmission Date: 20251021
  Serious: Yes (Other)
  Sender: ALEXION PHARMACEUTICALS
  Company Number: None

PATIENT
  Sex: Female

DRUGS (3)
  1. QUETIAPINE FUMARATE [Suspect]
     Active Substance: QUETIAPINE FUMARATE
     Indication: Psychotherapy
     Dosage: 50 MILLIGRAM, QD AT NIGHT
     Route: 065
  2. LITHIUM [Suspect]
     Active Substance: LITHIUM
     Indication: Psychotherapy
     Route: 065
  3. OLANZAPINE [Suspect]
     Active Substance: OLANZAPINE
     Indication: Psychotherapy
     Dosage: 5 MILLIGRAM, TID
     Route: 065

REACTIONS (1)
  - Disease recurrence [Recovered/Resolved]
